APPROVED DRUG PRODUCT: DEXTROAMPHETAMINE SULFATE
Active Ingredient: DEXTROAMPHETAMINE SULFATE
Strength: 5MG
Dosage Form/Route: CAPSULE, EXTENDED RELEASE;ORAL
Application: A209111 | Product #001
Applicant: NESHER PHARMACEUTICALS USA LLC
Approved: Jun 27, 2017 | RLD: No | RS: No | Type: DISCN